FAERS Safety Report 8290554-X (Version None)
Quarter: 2012Q2

REPORT INFORMATION
  Report Type: 
  Country: None (occurrence: None)
  Receive Date: 20120417
  Receipt Date: 20110420
  Transmission Date: 20120825
  Serious: No
  Sender: FDA-Public Use
  Company Number: US-ASTRAZENECA-2010SE19000

PATIENT
  Age: 76 Year
  Sex: Female

DRUGS (3)
  1. CRESTOR [Suspect]
     Dosage: 1/2  TABLET
     Route: 048
  2. CRESTOR [Suspect]
     Route: 048
  3. NEXIUM [Suspect]
     Route: 048

REACTIONS (2)
  - HEPATIC ENZYME ABNORMAL [None]
  - CATARACT OPERATION [None]
